FAERS Safety Report 8445539-7 (Version None)
Quarter: 2012Q2

REPORT INFORMATION
  Report Type: 
  Country: None (occurrence: None)
  Receive Date: 20120618
  Receipt Date: 20120604
  Transmission Date: 20120825
  Serious: Yes (Other)
  Sender: FDA-Public Use
  Company Number: CA-MERCK-1205USA00631

PATIENT
  Age: 64 Year
  Sex: Female

DRUGS (1)
  1. FOSAMAX PLUS D [Suspect]
     Indication: OSTEOPOROSIS
     Route: 048
     Dates: start: 20110101, end: 20110201

REACTIONS (8)
  - VOMITING [None]
  - DIZZINESS [None]
  - INFLUENZA LIKE ILLNESS [None]
  - ABDOMINAL DISTENSION [None]
  - NAUSEA [None]
  - WALDENSTROM'S MACROGLOBULINAEMIA [None]
  - EYE DISORDER [None]
  - RASH [None]
